FAERS Safety Report 6714354-4 (Version None)
Quarter: 2010Q2

REPORT INFORMATION
  Report Type: 
  Country: None (occurrence: None)
  Receive Date: 20100504
  Receipt Date: 20100423
  Transmission Date: 20101027
  Serious: No
  Sender: FDA-Public Use
  Company Number: ZYD-10-AE-089

PATIENT
  Age: 50 Year
  Sex: Female

DRUGS (1)
  1. BENZONATATE [Suspect]
     Indication: COUGH
     Dosage: 1 CAP - Q 8 HOURS - PO
     Route: 048

REACTIONS (2)
  - EYE DISCHARGE [None]
  - OCULAR HYPERAEMIA [None]
